FAERS Safety Report 9521665 (Version 14)
Quarter: 2014Q3

REPORT INFORMATION
  Report Type: Report from Study
  Country: CA (occurrence: CA)
  Receive Date: 20130913
  Receipt Date: 20140804
  Transmission Date: 20150326
  Serious: Yes (Death, Hospitalization)
  Sender: FDA-Public Use
  Company Number: PHHY2013CA096339

PATIENT
  Sex: Female

DRUGS (3)
  1. SANDOSTATIN LAR DEPOT [Suspect]
     Active Substance: OCTREOTIDE ACETATE
     Dosage: 30 MG, QMO
     Route: 030
     Dates: end: 20140705
  2. SANDOSTATIN LAR DEPOT [Suspect]
     Active Substance: OCTREOTIDE ACETATE
     Indication: COLON CANCER METASTATIC
     Dosage: 20 MG, EVERY 4 WEEKS
     Route: 030
     Dates: start: 20130729
  3. SANDOSTATIN [Suspect]
     Active Substance: OCTREOTIDE ACETATE
     Indication: COLON CANCER METASTATIC
     Dosage: 250 UG, DAILY
     Route: 058
     Dates: start: 20130711

REACTIONS (9)
  - Cystitis [Unknown]
  - Anxiety [Unknown]
  - Enterovesical fistula [Fatal]
  - Rectal abscess [Unknown]
  - Intestinal obstruction [Unknown]
  - Abdominal hernia obstructive [Unknown]
  - General physical health deterioration [Unknown]
  - Rectal cancer [Fatal]
  - Urinary tract infection [Unknown]
